FAERS Safety Report 5085115-X (Version None)
Quarter: 2006Q3

REPORT INFORMATION
  Report Type: 
  Country: None (occurrence: None)
  Receive Date: 20060720
  Receipt Date: 20050610
  Transmission Date: 20061208
  Serious: Yes (Other)
  Sender: FDA-Public Use
  Company Number: 2005051857

PATIENT
  Age: 64 Year
  Sex: Male
  Weight: 70.3075 kg

DRUGS (20)
  1. CELEBREX [Suspect]
     Indication: ARTHRALGIA
     Dosage: 400 MG (200 MG,2 IN 1 D),ORAL
     Route: 048
     Dates: start: 20020906, end: 20041217
  2. CELEBREX [Suspect]
     Indication: BACK PAIN
     Dosage: 400 MG (200 MG,2 IN 1 D),ORAL
     Route: 048
     Dates: start: 20020906, end: 20041217
  3. MORPHINE [Concomitant]
  4. OXYCONTIN [Concomitant]
  5. METFORMIN HCL [Concomitant]
  6. GLUCOTROL [Concomitant]
  7. NORVASC [Concomitant]
  8. PROTONIX [Concomitant]
  9. ATENOLOL [Concomitant]
  10. PROSCAR [Concomitant]
  11. PENTOXIFYLLINE [Concomitant]
  12. VOLMAX [Concomitant]
  13. DIOVAN HCT [Concomitant]
  14. DIAZEPAM [Concomitant]
  15. ALL OTHER THERAPEUTIC PRODUCTS (ALL OTHER THERAPEUTIC PRODUCTS) [Concomitant]
  16. ZOCOR [Concomitant]
  17. ADVAIR DISKUS 100/50 [Concomitant]
  18. LODINE [Concomitant]
  19. PAXIL [Concomitant]
  20. LOMOTIL [Concomitant]

REACTIONS (9)
  - DIZZINESS [None]
  - DRUG INEFFECTIVE [None]
  - FALL [None]
  - HEAD INJURY [None]
  - HEADACHE [None]
  - LIBIDO DECREASED [None]
  - LOSS OF CONSCIOUSNESS [None]
  - VISUAL ACUITY REDUCED [None]
  - WEIGHT DECREASED [None]
